FAERS Safety Report 7434377-X (Version None)
Quarter: 2011Q2

REPORT INFORMATION
  Report Type: 
  Country: None (occurrence: None)
  Receive Date: 20110425
  Receipt Date: 20110413
  Transmission Date: 20111010
  Serious: Yes (Hospitalization)
  Sender: FDA-Public Use
  Company Number: PHEH2010US03389

PATIENT
  Sex: Female

DRUGS (17)
  1. ZELNORM [Suspect]
     Route: 048
  2. DULOXETINE [Concomitant]
  3. LISINOPRIL [Concomitant]
  4. BACTRIM [Concomitant]
  5. PREDNISONE [Concomitant]
  6. NAPROXEN [Concomitant]
  7. NOVOLIN 70/30 [Concomitant]
  8. COREG [Concomitant]
  9. CLARITIN [Concomitant]
  10. LEVAQUIN [Concomitant]
  11. LORTAB [Concomitant]
  12. CIPROFLOXACIN [Concomitant]
  13. PREVACID [Concomitant]
  14. SINGULAIR [Concomitant]
  15. BENADRYL ^ACHE^ [Concomitant]
  16. PENICILLIN NOS [Concomitant]
  17. ZYRTEC [Concomitant]

REACTIONS (9)
  - EJECTION FRACTION [None]
  - INJURY [None]
  - PALPITATIONS [None]
  - ARTHRALGIA [None]
  - DYSPNOEA [None]
  - CHEST PAIN [None]
  - ABDOMINAL PAIN [None]
  - CARDIOMYOPATHY [None]
  - SYSTEMIC LUPUS ERYTHEMATOSUS [None]
